FAERS Safety Report 4345823-2 (Version None)
Quarter: 2004Q2

REPORT INFORMATION
  Report Type: 
  Country: None (occurrence: None)
  Receive Date: 20040424
  Receipt Date: 20030814
  Transmission Date: 20050107
  Serious: Yes (Other)
  Sender: FDA-Public Use
  Company Number: GB-MERCK-0308GBR00102B1

PATIENT
  Sex: Male
  Weight: 3 kg

DRUGS (8)
  1. ALBUTEROL [Concomitant]
  2. CALCIUM CARBONATE [Concomitant]
  3. FLUTICASONE PROPIONATE AND SALMETEROL XINAFOATE [Concomitant]
  4. SINGULAIR [Suspect]
     Indication: ASTHMA
     Dates: start: 20000101, end: 20030101
  5. SINGULAIR [Suspect]
     Dates: start: 20030101
  6. OMEPRAZOLE [Concomitant]
  7. PREDNISOLONE [Concomitant]
  8. THEOPHYLLINE [Concomitant]

REACTIONS (7)
  - BLOOD PH DECREASED [None]
  - CAESAREAN SECTION [None]
  - COMPLICATIONS OF MATERNAL EXPOSURE TO THERAPEUTIC DRUGS [None]
  - FOETAL HEART RATE DECREASED [None]
  - HEART RATE DECREASED [None]
  - MATERNAL DRUGS AFFECTING FOETUS [None]
  - PREGNANCY [None]
